FAERS Safety Report 15394458 (Version 1)
Quarter: 2018Q3

REPORT INFORMATION
  Report Type: Report from Study
  Country: None (occurrence: GB)
  Receive Date: 20180918
  Receipt Date: 20180918
  Transmission Date: 20181010
  Serious: Yes (Other)
  Sender: FDA-Public Use
  Company Number: GB-ABBVIE-18K-167-2483685-00

PATIENT
  Sex: Female

DRUGS (2)
  1. HUMIRA [Suspect]
     Active Substance: ADALIMUMAB
     Dosage: SECOND LOADING DOSE WEEK 2
     Route: 058
     Dates: start: 20180911, end: 20180911
  2. HUMIRA [Suspect]
     Active Substance: ADALIMUMAB
     Indication: CROHN^S DISEASE
     Dosage: FIRST LOADING DOSE WEEK 0
     Route: 058
     Dates: start: 20180828, end: 20180828

REACTIONS (2)
  - Nervousness [Unknown]
  - Vocal cord cyst [Unknown]

NARRATIVE: CASE EVENT DATE: 2018
